FAERS Safety Report 9627092 (Version 1)
Quarter: 2013Q4

REPORT INFORMATION
  Report Type: Spontaneous
  Country: US (occurrence: None)
  Receive Date: 20131011
  Receipt Date: 20131011
  Transmission Date: 20140711
  Serious: Yes (Hospitalization)
  Sender: FDA-Public Use
  Company Number: 2013P1019848

PATIENT
  Age: 65 Year
  Sex: Male

DRUGS (10)
  1. LITHIUM [Suspect]
     Indication: BIPOLAR I DISORDER
     Route: 048
  2. LISINOPRIL [Suspect]
     Route: 048
  3. METOPROLOL [Concomitant]
  4. ASPIRIN [Concomitant]
  5. WARFARIN [Concomitant]
  6. SPIRONOLACTONE [Concomitant]
  7. SIMVASTATIN [Concomitant]
  8. GABAPENTIN [Concomitant]
  9. SILDENAFIL [Concomitant]
  10. UNSPECIFIED PROSTATE HEALTH SUPPLEMENT [Concomitant]

REACTIONS (15)
  - Memory impairment [None]
  - Weight decreased [None]
  - Tremor [None]
  - Fall [None]
  - Head injury [None]
  - Confusional state [None]
  - Aphasia [None]
  - Macrocytosis [None]
  - Sinus bradycardia [None]
  - Toxicity to various agents [None]
  - Antipsychotic drug level above therapeutic [None]
  - Transient ischaemic attack [None]
  - Dehydration [None]
  - Drug interaction [None]
  - Cerebral hypoperfusion [None]
